FAERS Safety Report 10090444 (Version 1)
Quarter: 2014Q2

REPORT INFORMATION
  Report Type: Spontaneous
  Country: US (occurrence: US)
  Receive Date: 20140421
  Receipt Date: 20140421
  Transmission Date: 20141212
  Serious: Yes (Life-Threatening, Hospitalization, Other)
  Sender: FDA-Public Use
  Company Number: US-JNJFOC-20140414120

PATIENT
  Age: 56 Year
  Sex: Male

DRUGS (1)
  1. IMBRUVICA [Suspect]
     Indication: CHRONIC LYMPHOCYTIC LEUKAEMIA
     Route: 048
     Dates: start: 20140123, end: 20140223

REACTIONS (4)
  - Embolic cerebral infarction [Unknown]
  - Cardiac valve vegetation [Unknown]
  - Pneumonia [Not Recovered/Not Resolved]
  - Fungal sepsis [Unknown]
